FAERS Safety Report 12375564 (Version 1)
Quarter: 2016Q2

REPORT INFORMATION
  Report Type: Report from Study
  Country: US (occurrence: US)
  Receive Date: 20160517
  Receipt Date: 20160517
  Transmission Date: 20160815
  Serious: No
  Sender: FDA-Public Use
  Company Number: US-AMGEN-USASL2016061720

PATIENT
  Age: 4 Year
  Sex: Female
  Weight: 15.87 kg

DRUGS (1)
  1. ENBREL [Suspect]
     Active Substance: ETANERCEPT
     Indication: JUVENILE IDIOPATHIC ARTHRITIS
     Dosage: UNK, UNK
     Route: 065
     Dates: start: 20160419

REACTIONS (2)
  - Incorrect product storage [Unknown]
  - Intentional product misuse [Unknown]
